FAERS Safety Report 6034068-6 (Version None)
Quarter: 2009Q1

REPORT INFORMATION
  Report Type: 
  Country: None (occurrence: None)
  Receive Date: 20090112
  Receipt Date: 20081231
  Transmission Date: 20090719
  Serious: Yes (Hospitalization)
  Sender: FDA-Public Use
  Company Number: US-AMGEN-US326414

PATIENT
  Sex: Female

DRUGS (11)
  1. NPLATE [Suspect]
     Indication: IDIOPATHIC THROMBOCYTOPENIC PURPURA
     Route: 065
     Dates: start: 20080911, end: 20081112
  2. METFORMIN [Concomitant]
  3. LASIX [Concomitant]
  4. SIMVASTATIN [Concomitant]
  5. AMBIEN [Concomitant]
  6. ACTONEL [Concomitant]
  7. CALCIUM [Concomitant]
  8. MULTI-VITAMINS [Concomitant]
  9. TRAMADOL HCL [Concomitant]
  10. VICODIN [Concomitant]
  11. IMMUNOGLOBULINS [Concomitant]
     Route: 042

REACTIONS (2)
  - PLATELET COUNT DECREASED [None]
  - THERAPEUTIC RESPONSE DECREASED [None]
